FAERS Safety Report 12131238 (Version 1)
Quarter: 2016Q1

REPORT INFORMATION
  Report Type: Spontaneous
  Country: US (occurrence: US)
  Receive Date: 20160301
  Receipt Date: 20160301
  Transmission Date: 20160526
  Serious: No
  Sender: FDA-Public Use
  Company Number: US-PFIZER INC-2016060493

PATIENT
  Age: 27 Month
  Sex: Male

DRUGS (1)
  1. QUILLIVANT XR [Suspect]
     Active Substance: METHYLPHENIDATE HYDROCHLORIDE
     Dosage: UNK
     Dates: start: 20160201

REACTIONS (3)
  - Restlessness [Not Recovered/Not Resolved]
  - Accidental exposure to product by child [Unknown]
  - Overdose [Unknown]

NARRATIVE: CASE EVENT DATE: 20160201
